FAERS Safety Report 10364672 (Version 2)
Quarter: 2014Q3

REPORT INFORMATION
  Report Type: Report from Study
  Country: BO (occurrence: BO)
  Receive Date: 20140806
  Receipt Date: 20140821
  Transmission Date: 20150326
  Serious: Yes (Death, Other)
  Sender: FDA-Public Use
  Company Number: PHHY2014BO095933

PATIENT
  Age: 74 Year
  Sex: Female

DRUGS (2)
  1. GLIVEC [Suspect]
     Active Substance: IMATINIB MESYLATE
     Indication: CHRONIC MYELOID LEUKAEMIA
     Dosage: 400 MG, UNK
     Route: 048
  2. GLIVEC [Suspect]
     Active Substance: IMATINIB MESYLATE
     Dosage: 600 MG, UNK
     Route: 048

REACTIONS (6)
  - Atrial fibrillation [Unknown]
  - Anaemia [Unknown]
  - General physical health deterioration [Unknown]
  - Cardiac failure [Fatal]
  - Blast cell crisis [Unknown]
  - American trypanosomiasis [Unknown]

NARRATIVE: CASE EVENT DATE: 20140728
